FAERS Safety Report 13695600 (Version 1)
Quarter: 2017Q2

REPORT INFORMATION
  Report Type: Spontaneous
  Country: US (occurrence: US)
  Receive Date: 20170627
  Receipt Date: 20170627
  Transmission Date: 20170830
  Serious: Yes (Hospitalization, Other)
  Sender: FDA-Public Use
  Company Number: US-LANNETT COMPANY, INC.-US-2017LAN000865

PATIENT
  Age: 34 Year
  Sex: Female

DRUGS (2)
  1. BACLOFEN (20MG) [Suspect]
     Active Substance: BACLOFEN
     Indication: PAIN IN EXTREMITY
     Dosage: UNK
  2. DILAUDID [Concomitant]
     Active Substance: HYDROMORPHONE HYDROCHLORIDE
     Indication: PAIN IN EXTREMITY
     Dosage: UNK

REACTIONS (5)
  - Respiratory distress [Recovering/Resolving]
  - Coma [Recovered/Resolved]
  - Speech disorder [Recovered/Resolved]
  - Toxicity to various agents [Recovering/Resolving]
  - Confusional state [Recovered/Resolved]
